FAERS Safety Report 14111735 (Version 2)
Quarter: 2017Q4

REPORT INFORMATION
  Report Type: Report from Study
  Country: US (occurrence: US)
  Receive Date: 20171020
  Receipt Date: 20171114
  Transmission Date: 20180321
  Serious: Yes (Hospitalization, Other)
  Sender: FDA-Public Use
  Company Number: US-R-PHARM US LLC-2017RPM00076

PATIENT
  Age: 62 Year
  Sex: Female
  Weight: 62.8 kg

DRUGS (4)
  1. IXABEPILONE [Suspect]
     Active Substance: IXABEPILONE
     Indication: OVARIAN CANCER
     Dosage: 20 MG/M2, ON DAYS 1,8,15 EVERY 28 DAYS
     Route: 042
     Dates: start: 20170516, end: 20170713
  2. IXABEPILONE [Suspect]
     Active Substance: IXABEPILONE
     Dosage: 16 MG/M2, ON DAYS 1,8,15 EVERY 28 DAYS
     Route: 042
     Dates: start: 20170516, end: 20171103
  3. AVASTIN [Suspect]
     Active Substance: BEVACIZUMAB
     Indication: OVARIAN CANCER
     Dosage: 10 MG/KG, ON DAYS 1, 15 EVERY 28 DAYS
     Route: 042
     Dates: start: 20170516, end: 20171020
  4. NEURONTIN [Concomitant]
     Active Substance: GABAPENTIN
     Dosage: 100 MG, 1X/DAY

REACTIONS (2)
  - Small intestinal obstruction [Recovered/Resolved]
  - Metastases to central nervous system [Not Recovered/Not Resolved]

NARRATIVE: CASE EVENT DATE: 20170724
